FAERS Safety Report 9622084 (Version 3)
Quarter: 2013Q4

REPORT INFORMATION
  Report Type: Spontaneous
  Country: US (occurrence: US)
  Receive Date: 20131015
  Receipt Date: 20131203
  Transmission Date: 20140711
  Serious: Yes (Hospitalization)
  Sender: FDA-Public Use
  Company Number: US-PFIZER INC-2013292778

PATIENT
  Age: 58 Year
  Sex: Female
  Weight: 70.75 kg

DRUGS (4)
  1. ADVIL [Suspect]
     Indication: PAIN
     Dosage: 200 MG, AS NEEDED
     Route: 048
  2. ADVIL [Suspect]
     Indication: PYREXIA
  3. ADVIL [Suspect]
     Indication: SPORTS INJURY
  4. ADVIL [Suspect]
     Indication: DISCOMFORT

REACTIONS (1)
  - Fall [Unknown]
